FAERS Safety Report 7517958-4 (Version None)
Quarter: 2011Q2

REPORT INFORMATION
  Report Type: 
  Country: None (occurrence: None)
  Receive Date: 20110527
  Receipt Date: 20110527
  Transmission Date: 20111010
  Serious: Yes (Hospitalization)
  Sender: FDA-Public Use
  Company Number: None

PATIENT
  Age: 66 Year
  Sex: Male

DRUGS (9)
  1. DEXAMETHASONE [Concomitant]
  2. WARFARIN SODIUM [Concomitant]
  3. FENTANYL [Concomitant]
  4. NOVOLIN N + R [Concomitant]
  5. LISINOPRIL [Concomitant]
  6. ARANESP [Concomitant]
  7. OXYCODEON [Concomitant]
  8. REVLIMID [Suspect]
     Indication: MULTIPLE MYELOMA
     Dosage: 3 YEARS
     Route: 048
  9. AMLODIPINE [Concomitant]

REACTIONS (4)
  - METASTASES TO LIVER [None]
  - REFUSAL OF TREATMENT BY PATIENT [None]
  - LUNG SQUAMOUS CELL CARCINOMA STAGE UNSPECIFIED [None]
  - DEEP VEIN THROMBOSIS [None]
